FAERS Safety Report 7670337-1 (Version None)
Quarter: 2011Q3

REPORT INFORMATION
  Report Type: 
  Country: None (occurrence: None)
  Receive Date: 20110809
  Receipt Date: 20110727
  Transmission Date: 20111222
  Serious: No
  Sender: FDA-Public Use
  Company Number: US-BIOGENIDEC-2011BI005196

PATIENT
  Sex: Female

DRUGS (1)
  1. TYSABRI [Suspect]
     Indication: MULTIPLE SCLEROSIS
     Route: 042
     Dates: start: 20090714

REACTIONS (13)
  - DEMENTIA [None]
  - MEMORY IMPAIRMENT [None]
  - FALL [None]
  - TRANSIENT ISCHAEMIC ATTACK [None]
  - MUSCLE SPASMS [None]
  - LUMBAR VERTEBRAL FRACTURE [None]
  - PAIN [None]
  - DEVICE DISLOCATION [None]
  - BACK PAIN [None]
  - GAIT DISTURBANCE [None]
  - ASTHENIA [None]
  - DRUG EFFECT DECREASED [None]
  - HEADACHE [None]
